FAERS Safety Report 10405215 (Version 2)
Quarter: 2014Q3

REPORT INFORMATION
  Report Type: Report from Study
  Country: BR (occurrence: BR)
  Receive Date: 20140825
  Receipt Date: 20140924
  Transmission Date: 20150326
  Serious: Yes (Other)
  Sender: FDA-Public Use
  Company Number: PHHY2014BR103895

PATIENT
  Age: 68 Year
  Sex: Male

DRUGS (3)
  1. SPIRIVA [Suspect]
     Active Substance: TIOTROPIUM BROMIDE MONOHYDRATE
     Indication: CHRONIC OBSTRUCTIVE PULMONARY DISEASE
     Dosage: 5 UG, DAILY
     Route: 055
     Dates: start: 2011
  2. ONBREZ [Suspect]
     Active Substance: INDACATEROL
     Indication: CHRONIC OBSTRUCTIVE PULMONARY DISEASE
     Dosage: 150 UG DAILY
     Route: 055
     Dates: start: 2011
  3. OXIMAX [Suspect]
     Active Substance: MOMETASONE FUROATE
     Dosage: 400 UG, DAILY
     Route: 055
     Dates: start: 2011, end: 201308

REACTIONS (3)
  - Pneumothorax [Recovering/Resolving]
  - Dyspnoea exertional [Unknown]
  - Tachycardia [Recovering/Resolving]

NARRATIVE: CASE EVENT DATE: 201107
